FAERS Safety Report 6027878-2 (Version None)
Quarter: 2009Q1

REPORT INFORMATION
  Report Type: 
  Country: None (occurrence: None)
  Receive Date: 20090105
  Receipt Date: 20081215
  Transmission Date: 20090719
  Serious: No
  Sender: FDA-Public Use
  Company Number: US-B.I. PHARMACEUTICALS,INC./RIDGEFIELD-2008-BP-18722BP

PATIENT
  Age: 51 Year
  Sex: Male

DRUGS (2)
  1. MIRAPEX [Suspect]
     Indication: PARKINSON'S DISEASE
     Dosage: 4.5MG
     Route: 048
     Dates: start: 20050901, end: 20081201
  2. ARTANE [Concomitant]
     Dosage: 4MG

REACTIONS (1)
  - MUSCLE RIGIDITY [None]
